FAERS Safety Report 22202223 (Version 5)
Quarter: 2023Q2

REPORT INFORMATION
  Report Type: Report from Study
  Country: TH (occurrence: None)
  Receive Date: 20230412
  Receipt Date: 20230510
  Transmission Date: 20230721
  Serious: Yes (Hospitalization)
  Sender: FDA-Public Use
  Company Number: TH-ROCHE-3326064

PATIENT
  Age: 73 Year
  Sex: Female
  Weight: 38 kg

DRUGS (20)
  1. MOSUNETUZUMAB [Suspect]
     Active Substance: MOSUNETUZUMAB
     Indication: B-cell lymphoma
     Dosage: ON 03/APR/2023, THE PATIENT WAS RECEIVED MOST RECENT DOSE OF MOSUNETUZUMAB AT 5 MG PRIOR TO AE/SAE O
     Route: 058
     Dates: start: 20230403
  2. POLATUZUMAB VEDOTIN [Suspect]
     Active Substance: POLATUZUMAB VEDOTIN
     Indication: B-cell lymphoma
     Dosage: ON 03/APR/2023, THE PATIENT WAS RECEIVED MOST RECENT DOSE OF POLATUZUMAB AT 68.4 MG PRIOR TO AE/SAE
     Route: 042
     Dates: start: 20230403
  3. LORAZEPAM [Concomitant]
     Active Substance: LORAZEPAM
     Indication: Insomnia
  4. SODIUM CHLORIDE [Concomitant]
     Active Substance: SODIUM CHLORIDE
     Dates: start: 20230403, end: 20230403
  5. SODIUM CHLORIDE [Concomitant]
     Active Substance: SODIUM CHLORIDE
     Dates: start: 20230410, end: 20230410
  6. SODIUM CHLORIDE [Concomitant]
     Active Substance: SODIUM CHLORIDE
     Dates: start: 20230404, end: 20230418
  7. CHLORPHENIRAMINE [Concomitant]
     Active Substance: CHLORPHENIRAMINE
     Indication: Premedication
     Dates: start: 20230403, end: 20230403
  8. CHLORPHENIRAMINE [Concomitant]
     Active Substance: CHLORPHENIRAMINE
     Dates: start: 20230410, end: 20230410
  9. ACETAMINOPHEN [Concomitant]
     Active Substance: ACETAMINOPHEN
     Dates: start: 20230403, end: 20230403
  10. ACETAMINOPHEN [Concomitant]
     Active Substance: ACETAMINOPHEN
     Dates: start: 20230410, end: 20230410
  11. DEXAMETHASONE [Concomitant]
     Active Substance: DEXAMETHASONE
     Route: 042
     Dates: start: 20230403, end: 20230403
  12. DEXAMETHASONE [Concomitant]
     Active Substance: DEXAMETHASONE
     Route: 042
     Dates: start: 20230410, end: 20230410
  13. IVERMECTIN [Concomitant]
     Active Substance: IVERMECTIN
     Dates: start: 20230403, end: 20230404
  14. ACYCLOVIR [Concomitant]
     Active Substance: ACYCLOVIR
     Dates: start: 20230403
  15. LAMIVUDINE [Concomitant]
     Active Substance: LAMIVUDINE
     Dates: start: 20230403
  16. CLOBET CREAM [Concomitant]
     Indication: Rash maculo-papular
     Dosage: DOSE: OTHER
     Route: 061
     Dates: start: 20230410
  17. POTASSIUM CHLORIDE [Concomitant]
     Active Substance: POTASSIUM CHLORIDE
     Indication: Hypokalaemia
     Dates: start: 20230410, end: 20230410
  18. POTASSIUM CHLORIDE [Concomitant]
     Active Substance: POTASSIUM CHLORIDE
     Dates: start: 20230405, end: 20230405
  19. ARTIFICIAL SALIVA [Concomitant]
     Indication: Dry mouth
     Dates: start: 20230403
  20. MAGNESIUM SULFATE [Concomitant]
     Active Substance: MAGNESIUM SULFATE
     Dates: start: 20230404, end: 20230404

REACTIONS (1)
  - Urinary tract infection [Recovered/Resolved]

NARRATIVE: CASE EVENT DATE: 20230404
